FAERS Safety Report 9781981 (Version 2)
Quarter: 2013Q4

REPORT INFORMATION
  Report Type: Spontaneous
  Country: JP (occurrence: JP)
  Receive Date: 20131225
  Receipt Date: 20131231
  Transmission Date: 20140711
  Serious: Yes (Hospitalization, Other)
  Sender: FDA-Public Use
  Company Number: JP-009507513-1312JPN009864

PATIENT
  Age: 62 Year
  Sex: Female

DRUGS (7)
  1. GASTER D [Suspect]
     Indication: GASTRITIS
     Dosage: 10 MG, QD
     Route: 048
     Dates: start: 2007
  2. LIPITOR [Suspect]
     Indication: HYPERLIPIDAEMIA
     Dosage: 5 MG, QD
     Route: 048
     Dates: start: 2007, end: 201306
  3. MICARDIS [Suspect]
     Indication: HYPERTENSION
     Dosage: 40 MG, QD
     Route: 048
     Dates: start: 2008
  4. ATORVASTATIN CALCIUM [Suspect]
     Indication: HYPERLIPIDAEMIA
     Dosage: 5 MG, DAILY
     Route: 048
     Dates: start: 201307
  5. WARFARIN [Concomitant]
     Dosage: UNK
     Route: 048
     Dates: start: 2007
  6. BIOFERMIN (BIFIDOBACTERIUM BIFIDUM) [Concomitant]
     Dosage: UNK
     Route: 048
     Dates: start: 2007
  7. NEUQUINON [Concomitant]
     Dosage: UNK
     Route: 048
     Dates: start: 2007

REACTIONS (2)
  - Cerebrovascular accident [Recovered/Resolved]
  - Alopecia [Unknown]
